FAERS Safety Report 5287483-2 (Version None)
Quarter: 2007Q1

REPORT INFORMATION
  Report Type: 
  Country: None (occurrence: None)
  Receive Date: 20070116
  Receipt Date: 20060920
  Transmission Date: 20070707
  Serious: No
  Sender: FDA-Public Use
  Company Number: 2006SP003357

PATIENT
  Sex: Female

DRUGS (1)
  1. LUNESTA [Suspect]
     Dosage: 2 MG; 1X; ORAL
     Route: 048
     Dates: start: 20060919, end: 20060919

REACTIONS (3)
  - DYSGEUSIA [None]
  - INSOMNIA [None]
  - SALIVARY HYPERSECRETION [None]
